FAERS Safety Report 14573577 (Version 1)
Quarter: 2018Q1

REPORT INFORMATION
  Report Type: Spontaneous
  Country: US (occurrence: US)
  Receive Date: 20180226
  Receipt Date: 20180226
  Transmission Date: 20180509
  Serious: No
  Sender: FDA-Public Use
  Company Number: US-ALLERGAN-1721620US

PATIENT
  Sex: Female

DRUGS (1)
  1. FLUOROMETHOLONE, 0.1% [Suspect]
     Active Substance: FLUOROMETHOLONE
     Indication: EYE IRRITATION
     Route: 047

REACTIONS (3)
  - Product storage error [Unknown]
  - Eye irritation [Not Recovered/Not Resolved]
  - Ocular discomfort [Unknown]
